FAERS Safety Report 10096459 (Version 2)
Quarter: 2014Q2

REPORT INFORMATION
  Report Type: Spontaneous
  Country: US (occurrence: US)
  Receive Date: 20140422
  Receipt Date: 20140422
  Transmission Date: 20141212
  Serious: No
  Sender: FDA-Public Use
  Company Number: US-GILEAD-2012-0064551

PATIENT
  Sex: Male

DRUGS (6)
  1. LETAIRIS [Suspect]
     Indication: PULMONARY HYPERTENSION
     Route: 048
     Dates: start: 20121015
  2. LETAIRIS [Suspect]
     Indication: CARDIAC VALVE DISEASE
  3. LETAIRIS [Suspect]
     Indication: SLEEP APNOEA SYNDROME
  4. LETAIRIS [Suspect]
     Indication: MOUNTAIN SICKNESS ACUTE
  5. LETAIRIS [Suspect]
     Indication: HEPATIC FAILURE
  6. ADCIRCA [Concomitant]

REACTIONS (5)
  - Hypersensitivity [Unknown]
  - Fluid retention [Unknown]
  - Dyspnoea [Unknown]
  - Nasal congestion [Unknown]
  - Headache [Unknown]
